FAERS Safety Report 17864617 (Version 6)
Quarter: 2024Q1

REPORT INFORMATION
  Report Type: Report from Study
  Country: US (occurrence: US)
  Receive Date: 20200605
  Receipt Date: 20240213
  Transmission Date: 20240409
  Serious: No
  Sender: FDA-Public Use
  Company Number: US-ACADIA PHARMACEUTICALS INC.-ACA-2020-PIM-001570

PATIENT
  Age: 74 Year
  Sex: Male

DRUGS (12)
  1. NUPLAZID [Suspect]
     Active Substance: PIMAVANSERIN TARTRATE
     Indication: Parkinson^s disease psychosis
     Dosage: 34 MILLIGRAM, QD
     Route: 048
     Dates: start: 20200228, end: 20230115
  2. NUPLAZID [Suspect]
     Active Substance: PIMAVANSERIN TARTRATE
     Indication: Hallucination
     Dosage: 34 MILLIGRAM, QD
     Route: 048
     Dates: end: 20230601
  3. NUPLAZID [Suspect]
     Active Substance: PIMAVANSERIN TARTRATE
     Indication: Delusion
     Dosage: 34 MILLIGRAM, QD
     Route: 048
     Dates: start: 20230602
  4. NUPLAZID [Suspect]
     Active Substance: PIMAVANSERIN TARTRATE
     Dosage: 34 MILLIGRAM, QD
     Route: 048
     Dates: start: 20200527
  5. AZILECT [Concomitant]
     Active Substance: RASAGILINE MESYLATE
     Dosage: 1 MILLIGRAM
  6. FAMOTIDINE [Concomitant]
     Active Substance: FAMOTIDINE
     Dosage: 40 MILLIGRAM
  7. HYDROXOCOBALAMIN HYDROCHLORIDE [Concomitant]
     Active Substance: HYDROXOCOBALAMIN HYDROCHLORIDE
     Dosage: 5-325MG
  8. KLONOPIN [Concomitant]
     Active Substance: CLONAZEPAM
     Dosage: 0.5 MG
  9. PLAVIX [Concomitant]
     Active Substance: CLOPIDOGREL BISULFATE
     Dosage: 75 MILLIGRAM
  10. PRAMIPEXOLE [Concomitant]
     Active Substance: PRAMIPEXOLE\PRAMIPEXOLE DIHYDROCHLORIDE
     Dosage: 1.5MG
  11. RAPAFLO [Concomitant]
     Active Substance: SILODOSIN
     Dosage: 8 MILLIGRAM
  12. VITAMIN D NOS [Concomitant]
     Active Substance: VITAMIN D NOS
     Dosage: 1000UNIT

REACTIONS (8)
  - Product dose omission issue [Unknown]
  - Nonspecific reaction [Recovered/Resolved]
  - Product dose omission in error [Recovered/Resolved]
  - Product dose omission issue [Recovered/Resolved]
  - Constipation [Not Recovered/Not Resolved]
  - Hallucination [Not Recovered/Not Resolved]
  - Drug ineffective [Not Recovered/Not Resolved]
  - Hallucination [Recovered/Resolved]

NARRATIVE: CASE EVENT DATE: 20230101
